FAERS Safety Report 23708096 (Version 1)
Quarter: 2024Q2

REPORT INFORMATION
  Report Type: Spontaneous
  Country: CA (occurrence: CA)
  Receive Date: 20240404
  Receipt Date: 20240404
  Transmission Date: 20240716
  Serious: Yes (Other)
  Sender: FDA-Public Use
  Company Number: CA-STRIDES ARCOLAB LIMITED-2024SP003879

PATIENT
  Age: 10 Month
  Sex: Female

DRUGS (3)
  1. PREDNISOLONE [Suspect]
     Active Substance: PREDNISOLONE
     Indication: Systemic mastocytosis
     Dosage: UNK (HIGH DOSE PREDNISONE)
     Route: 065
  2. LANSOPRAZOLE [Concomitant]
     Active Substance: LANSOPRAZOLE
     Indication: Product used for unknown indication
     Dosage: UNK
     Route: 065
  3. CALCIUM [Concomitant]
     Active Substance: CALCIUM
     Indication: Product used for unknown indication
     Dosage: UNK
     Route: 065

REACTIONS (6)
  - Failure to thrive [Unknown]
  - Adrenal insufficiency [Unknown]
  - Idiopathic intracranial hypertension [Unknown]
  - Drug ineffective [Unknown]
  - Osteoporosis [Unknown]
  - Bone development abnormal [Unknown]
